FAERS Safety Report 8520365-9 (Version None)
Quarter: 2012Q3

REPORT INFORMATION
  Report Type: 
  Country: None (occurrence: None)
  Receive Date: 20120719
  Receipt Date: 20120709
  Transmission Date: 20120928
  Serious: Yes (Hospitalization)
  Sender: FDA-Public Use
  Company Number: FR-MILLENNIUM PHARMACEUTICALS, INC.-2012-04839

PATIENT

DRUGS (6)
  1. LYRICA [Concomitant]
  2. XATRAL                             /00975301/ [Concomitant]
  3. VELCADE [Suspect]
     Indication: MULTIPLE MYELOMA
     Dosage: 3.5 MG, UNK
     Route: 042
     Dates: start: 20091201, end: 20110901
  4. LASIX [Concomitant]
  5. CORDARONE [Concomitant]
  6. LOVENOX [Concomitant]

REACTIONS (1)
  - PULMONARY ARTERIAL HYPERTENSION [None]
